FAERS Safety Report 10730472 (Version 4)
Quarter: 2015Q2

REPORT INFORMATION
  Report Type: Spontaneous
  Country: US (occurrence: US)
  Receive Date: 20150122
  Receipt Date: 20150626
  Transmission Date: 20150821
  Serious: Yes (Hospitalization, Other)
  Sender: FDA-Public Use
  Company Number: US-009507513-1501USA008000

PATIENT
  Sex: Female

DRUGS (8)
  1. FOSAMAX [Suspect]
     Active Substance: ALENDRONATE SODIUM
     Indication: OSTEOPENIA
  2. PREMARIN [Concomitant]
     Active Substance: ESTROGENS, CONJUGATED
     Indication: HORMONE REPLACEMENT THERAPY
     Dosage: UNK
     Dates: start: 1980
  3. BONIVA [Suspect]
     Active Substance: IBANDRONATE SODIUM
     Indication: OSTEOPOROSIS
     Dosage: 150 MG, QM
     Dates: start: 20050322, end: 201301
  4. VITAMINS (UNSPECIFIED) [Concomitant]
     Active Substance: VITAMINS
     Dosage: UNK
     Dates: start: 1990
  5. ACIPHEX [Concomitant]
     Active Substance: RABEPRAZOLE SODIUM
     Dosage: UNK
     Dates: start: 19960826
  6. BONIVA [Suspect]
     Active Substance: IBANDRONATE SODIUM
     Indication: OSTEOPENIA
  7. FOSAMAX [Suspect]
     Active Substance: ALENDRONATE SODIUM
     Indication: OSTEOPOROSIS
     Dosage: 70 MG, QW
     Route: 048
     Dates: start: 20010622, end: 200501
  8. CALCIUM (UNSPECIFIED) [Concomitant]
     Active Substance: CALCIUM
     Dosage: UNK
     Dates: start: 1980

REACTIONS (29)
  - Femur fracture [Recovering/Resolving]
  - Hypertension [Not Recovered/Not Resolved]
  - Haemorrhoid operation [Unknown]
  - Vertigo [Unknown]
  - Oedema peripheral [Unknown]
  - Low turnover osteopathy [Unknown]
  - Pollakiuria [Unknown]
  - Cardiac disorder [Unknown]
  - Hypothyroidism [Unknown]
  - Cardiac murmur [Unknown]
  - Pneumonia [Unknown]
  - Dermatitis contact [Unknown]
  - Cerebrovascular accident [Unknown]
  - Bronchitis [Recovered/Resolved]
  - Muscle strain [Unknown]
  - Otitis media [Unknown]
  - Varicose vein [Unknown]
  - Arthralgia [Unknown]
  - Constipation [Unknown]
  - Appendicectomy [Unknown]
  - Transient ischaemic attack [Unknown]
  - Arthritis [Unknown]
  - Overweight [Not Recovered/Not Resolved]
  - Transient ischaemic attack [Unknown]
  - Anaemia postoperative [Unknown]
  - Osteoarthritis [Unknown]
  - Haemorrhoids [Unknown]
  - Ligament sprain [Unknown]
  - Stress fracture [Unknown]

NARRATIVE: CASE EVENT DATE: 2001
